FAERS Safety Report 10510544 (Version 1)
Quarter: 2014Q4

REPORT INFORMATION
  Report Type: Spontaneous
  Country: US (occurrence: None)
  Receive Date: 20141009
  Receipt Date: 20141009
  Transmission Date: 20150528
  Serious: No
  Sender: FDA-Public Use
  Company Number: None

PATIENT
  Age: 26 Year
  Sex: Female
  Weight: 77.11 kg

DRUGS (1)
  1. MIRENA [Suspect]
     Active Substance: LEVONORGESTREL
     Indication: CONTRACEPTION
     Dosage: 1 EVERY 5 YEARS VAGINAL
     Route: 067
     Dates: start: 20120416, end: 20141008

REACTIONS (2)
  - Lactation disorder [None]
  - Breast enlargement [None]

NARRATIVE: CASE EVENT DATE: 20141003
